FAERS Safety Report 4515605-7 (Version None)
Quarter: 2004Q4

REPORT INFORMATION
  Report Type: 
  Country: None (occurrence: None)
  Receive Date: 20041126
  Receipt Date: 20041115
  Transmission Date: 20050328
  Serious: Yes (Hospitalization, Other)
  Sender: FDA-Public Use
  Company Number: 2004021476

PATIENT
  Age: 84 Year
  Sex: Female
  Weight: 64 kg

DRUGS (3)
  1. NEURONTIN [Suspect]
     Indication: HERPES ZOSTER
     Dosage: 1200 MG (400 MG, 3 IN 1 D), ORAL
     Route: 048
     Dates: start: 20020115
  2. ACETYLSALICYLIC ACID SRT [Concomitant]
  3. ACETAMINOPHEN [Concomitant]

REACTIONS (22)
  - BLOOD CHOLESTEROL INCREASED [None]
  - BLOOD CREATININE INCREASED [None]
  - BLOOD GLUCOSE INCREASED [None]
  - BLOOD PRESSURE DECREASED [None]
  - BRAIN SCAN ABNORMAL [None]
  - BUNDLE BRANCH BLOCK LEFT [None]
  - CARDIO-RESPIRATORY ARREST [None]
  - CIRCULATORY COLLAPSE [None]
  - EAR PAIN [None]
  - FATIGUE [None]
  - FIBRIN D DIMER INCREASED [None]
  - HAEMATOCRIT INCREASED [None]
  - HAEMOGLOBIN INCREASED [None]
  - HYPERTENSION [None]
  - LOSS OF CONSCIOUSNESS [None]
  - LYMPHOPENIA [None]
  - MALAISE [None]
  - OXYGEN SATURATION DECREASED [None]
  - PALLOR [None]
  - PARAESTHESIA [None]
  - TREATMENT NONCOMPLIANCE [None]
  - VOMITING [None]
